FAERS Safety Report 25928844 (Version 1)
Quarter: 2025Q4

REPORT INFORMATION
  Report Type: Report from Study
  Country: EU (occurrence: EU)
  Receive Date: 20251016
  Receipt Date: 20251016
  Transmission Date: 20260118
  Serious: Yes (Other)
  Sender: ABBVIE
  Company Number: EU-ABBVIE-6502161

PATIENT
  Age: 69 Year
  Sex: Male

DRUGS (2)
  1. FOSCARBIDOPA\FOSLEVODOPA [Suspect]
     Active Substance: FOSCARBIDOPA\FOSLEVODOPA
     Indication: Parkinson^s disease
     Dosage: CR:0.37 ML/H CRH:0.40 ML/H CRN:0.16 ML/H ED:0,10 ML
     Route: 058
     Dates: start: 20250515
  2. ONGENTYS [Concomitant]
     Active Substance: OPICAPONE
     Indication: Product used for unknown indication
     Dosage: 50 MG

REACTIONS (12)
  - Abscess [Recovering/Resolving]
  - Hyperkinesia [Not Recovered/Not Resolved]
  - Tremor [Unknown]
  - Memory impairment [Unknown]
  - Dyskinesia [Unknown]
  - Infusion site pain [Unknown]
  - Infusion site hypertrophy [Unknown]
  - On and off phenomenon [Unknown]
  - Hallucination [Unknown]
  - Diplopia [Unknown]
  - Infusion site hypertrophy [Unknown]
  - Infusion site hypertrophy [Unknown]

NARRATIVE: CASE EVENT DATE: 20250101
